FAERS Safety Report 5356658-6 (Version None)
Quarter: 2007Q2

REPORT INFORMATION
  Report Type: 
  Country: None (occurrence: None)
  Receive Date: 20070530
  Receipt Date: 20061108
  Transmission Date: 20071010
  Serious: Yes (Hospitalization)
  Sender: FDA-Public Use
  Company Number: US200608005620

PATIENT
  Age: 43 Year
  Sex: Female
  Weight: 95.2 kg

DRUGS (4)
  1. ZYPREXA [Suspect]
     Dosage: 5 MG, 7.5 MG
     Dates: start: 20000801
  2. ZYPREXA [Suspect]
     Dosage: 5 MG, 7.5 MG
     Dates: start: 20020807
  3. ZIPRASIDONE [Concomitant]
  4. CITALOPRAM HYDROBROMIDE [Concomitant]

REACTIONS (4)
  - CHEST PAIN [None]
  - DIABETES MELLITUS [None]
  - HYPERTENSION [None]
  - OBESITY [None]
